FAERS Safety Report 14298887 (Version 1)
Quarter: 2017Q4

REPORT INFORMATION
  Report Type: Spontaneous
  Country: US (occurrence: US)
  Receive Date: 20171216
  Receipt Date: 20171216
  Transmission Date: 20180321
  Serious: No
  Sender: FDA-Public Use
  Company Number: None

PATIENT
  Age: 2 Year
  Sex: Male

DRUGS (1)
  1. AFINITOR DISPERZ [Suspect]
     Active Substance: EVEROLIMUS

REACTIONS (3)
  - Stomatitis [None]
  - Drug dose omission [None]
  - Feeding disorder [None]

NARRATIVE: CASE EVENT DATE: 20171216
